FAERS Safety Report 5280956-8 (Version None)
Quarter: 2007Q1

REPORT INFORMATION
  Report Type: 
  Country: None (occurrence: None)
  Receive Date: 20070329
  Receipt Date: 20070321
  Transmission Date: 20070707
  Serious: Yes (Life-Threatening, Hospitalization)
  Sender: FDA-Public Use
  Company Number: US-SHR-US-2007-010094

PATIENT
  Age: 52 Year
  Sex: Female

DRUGS (1)
  1. ULTRAVIST 300 [Suspect]
     Dosage: APPROX. 150 ML, 1 DOSE
     Route: 042
     Dates: start: 20070316, end: 20070316

REACTIONS (4)
  - ANAPHYLACTIC SHOCK [None]
  - LOSS OF CONSCIOUSNESS [None]
  - MULTI-ORGAN FAILURE [None]
  - PULSE ABSENT [None]
